FAERS Safety Report 6694986-2 (Version None)
Quarter: 2010Q2

REPORT INFORMATION
  Report Type: 
  Country: None (occurrence: None)
  Receive Date: 20100421
  Receipt Date: 20100412
  Transmission Date: 20101027
  Serious: Yes (Disabling)
  Sender: FDA-Public Use
  Company Number: 009657

PATIENT
  Sex: Male
  Weight: 80 kg

DRUGS (4)
  1. LACOSAMIDE [Suspect]
     Dosage: (100 MG BID), (150 MG, 100MG+50MG ORAL)
     Route: 048
     Dates: start: 20100305
  2. LEVETIRACETAM [Suspect]
     Dosage: (1250 MG BID ORAL), (1000 MG BID), (500 MG BID)
     Route: 048
  3. CARBAMAZEPINE [Concomitant]
  4. DIPHANTOINE [Concomitant]

REACTIONS (4)
  - AGGRESSION [None]
  - CONDITION AGGRAVATED [None]
  - PSORIASIS [None]
  - PSYCHOTIC DISORDER [None]
